FAERS Safety Report 25499537 (Version 1)
Quarter: 2025Q3

REPORT INFORMATION
  Report Type: Spontaneous
  Country: US (occurrence: US)
  Receive Date: 20250701
  Receipt Date: 20250701
  Transmission Date: 20251021
  Serious: No
  Sender: VERTEX
  Company Number: US-VERTEX PHARMACEUTICALS-2025-010530

PATIENT
  Age: 80 Year
  Sex: Female

DRUGS (2)
  1. SUZETRIGINE [Suspect]
     Active Substance: SUZETRIGINE
     Indication: Pain
     Route: 048
  2. GABAPENTIN [Concomitant]
     Active Substance: GABAPENTIN
     Indication: Pain

REACTIONS (2)
  - Confusional state [Recovered/Resolved]
  - Psychotic disorder [Recovered/Resolved]
